FAERS Safety Report 21822528 (Version 30)
Quarter: 2024Q4

REPORT INFORMATION
  Report Type: Report from Study
  Country: DE (occurrence: DE)
  Receive Date: 20230105
  Receipt Date: 20241220
  Transmission Date: 20250114
  Serious: Yes (Other)
  Sender: ROCHE
  Company Number: DE-ROCHE-3256177

PATIENT
  Age: 30 Year
  Sex: Female

DRUGS (18)
  1. OCREVUS [Suspect]
     Active Substance: OCRELIZUMAB
     Indication: Relapsing-remitting multiple sclerosis
     Dosage: SUBSEQUENT DOSE: 31/OCT/2019. 600 MG IN 168 DAYS.?189 DAYS, 600MG??11/SEP/2023; 8TH MAINTENANCE DOSE
     Route: 042
     Dates: start: 20191017
  2. OCREVUS [Suspect]
     Active Substance: OCRELIZUMAB
     Route: 042
     Dates: start: 20200514
  3. OCREVUS [Suspect]
     Active Substance: OCRELIZUMAB
     Route: 042
     Dates: start: 20191031
  4. OCREVUS [Suspect]
     Active Substance: OCRELIZUMAB
     Route: 042
     Dates: start: 20201029
  5. OCREVUS [Suspect]
     Active Substance: OCRELIZUMAB
     Route: 042
     Dates: start: 20210426
  6. OCREVUS [Suspect]
     Active Substance: OCRELIZUMAB
     Dosage: SUBSEQUENT DOSE ADMINISTERED: 600 MG ONCE IN 189 DAYS
     Route: 042
  7. OCREVUS [Suspect]
     Active Substance: OCRELIZUMAB
     Route: 042
  8. OCREVUS [Suspect]
     Active Substance: OCRELIZUMAB
     Route: 042
  9. OCREVUS [Suspect]
     Active Substance: OCRELIZUMAB
     Route: 042
  10. DIMETHINDENE [Suspect]
     Active Substance: DIMETHINDENE
     Indication: Premedication
     Route: 065
  11. CORTISONE [Suspect]
     Active Substance: CORTISONE
     Indication: Premedication
     Route: 065
  12. COMIRNATY (TOZINAMERAN) [Suspect]
     Active Substance: TOZINAMERAN
     Indication: COVID-19 prophylaxis
     Dosage: FIRST DOSE
     Route: 065
     Dates: end: 20210720
  13. COMIRNATY (TOZINAMERAN) [Suspect]
     Active Substance: TOZINAMERAN
     Dosage: SECOND DOSE
     Route: 065
     Dates: start: 20210826, end: 20210826
  14. DESOGESTREL [Concomitant]
     Active Substance: DESOGESTREL
     Indication: Contraception
  15. CHOLECALCIFEROL [Concomitant]
     Active Substance: CHOLECALCIFEROL
  16. BIOTIN [Concomitant]
     Active Substance: BIOTIN
  17. IBUPROFEN [Concomitant]
     Active Substance: IBUPROFEN
     Dosage: 400-600 MG AS NEEDED
  18. ACETAMINOPHEN [Concomitant]
     Active Substance: ACETAMINOPHEN

REACTIONS (67)
  - Dyspnoea [Recovered/Resolved]
  - Headache [Recovered/Resolved]
  - Skin disorder [Recovered/Resolved]
  - Oropharyngeal pain [Recovered/Resolved]
  - Nasopharyngitis [Recovered/Resolved]
  - Pharyngitis [Recovered/Resolved]
  - Ear pain [Recovered/Resolved]
  - Diarrhoea [Recovered/Resolved]
  - Migraine [Recovered/Resolved]
  - Nasal oedema [Recovered/Resolved]
  - Fall [Unknown]
  - Ligament sprain [Recovered/Resolved]
  - Sciatica [Not Recovered/Not Resolved]
  - Hypoaesthesia [Recovering/Resolving]
  - Paraesthesia [Recovered/Resolved]
  - Spondylitis [Recovering/Resolving]
  - Sinusitis [Recovered/Resolved]
  - Abdominal pain [Recovered/Resolved]
  - Asthenia [Recovered/Resolved]
  - Haematoma [Recovered/Resolved]
  - Contusion [Recovered/Resolved]
  - Limb injury [Recovered/Resolved]
  - Gait disturbance [Recovered/Resolved]
  - Dysarthria [Recovered/Resolved]
  - Dysphonia [Recovered/Resolved]
  - Cough [Recovered/Resolved]
  - Arthralgia [Recovered/Resolved]
  - Spinal anaesthesia [Recovered/Resolved]
  - Oral herpes [Recovered/Resolved]
  - Nausea [Recovered/Resolved]
  - Vomiting [Recovered/Resolved]
  - Sleep disorder [Recovered/Resolved]
  - Poor quality sleep [Recovered/Resolved]
  - Insomnia [Recovered/Resolved]
  - Food craving [Recovered/Resolved]
  - Sacroiliac joint dysfunction [Recovered/Resolved]
  - Intervertebral disc protrusion [Recovering/Resolving]
  - Headache [Recovered/Resolved]
  - Rash [Recovered/Resolved]
  - Erythema [Recovered/Resolved]
  - Peripheral swelling [Recovered/Resolved]
  - Injection site warmth [Recovering/Resolving]
  - Listless [Recovered/Resolved]
  - Muscle tightness [Recovered/Resolved]
  - Infection [Recovered/Resolved]
  - Vertebral foraminal stenosis [Recovering/Resolving]
  - Carpal tunnel syndrome [Not Recovered/Not Resolved]
  - Pain in extremity [Recovered/Resolved]
  - Pain [Recovered/Resolved]
  - Body temperature increased [Recovered/Resolved]
  - Back pain [Recovered/Resolved]
  - Vertigo [Unknown]
  - Coronavirus test positive [Recovered/Resolved]
  - Injection site pain [Recovered/Resolved]
  - Ear discomfort [Recovered/Resolved]
  - Fatigue [Recovered/Resolved]
  - Cubital tunnel syndrome [Recovered/Resolved]
  - COVID-19 [Recovered/Resolved]
  - Immunisation reaction [Recovered/Resolved]
  - Osteoarthritis [Recovered/Resolved]
  - Synovial cyst [Recovered/Resolved]
  - Productive cough [Not Recovered/Not Resolved]
  - Gastritis [Recovered/Resolved]
  - Fibroadenoma of breast [Unknown]
  - Respiratory tract infection [Recovered/Resolved]
  - Mental disorder [Recovered/Resolved]
  - Injection site pain [Recovered/Resolved]

NARRATIVE: CASE EVENT DATE: 20191017
